FAERS Safety Report 4359310-9 (Version None)
Quarter: 2004Q2

REPORT INFORMATION
  Report Type: 
  Country: None (occurrence: None)
  Receive Date: 20040512
  Receipt Date: 20040428
  Transmission Date: 20050107
  Serious: Yes (Hospitalization)
  Sender: FDA-Public Use
  Company Number: GBR-2004-0001022

PATIENT
  Age: 72 Year
  Sex: Male

DRUGS (4)
  1. MORPHINE SULFATE [Suspect]
     Dosage: 120 MG, DAILY, ORAL
     Route: 048
  2. DISTILBENE (DIETHYLSTILBESTROL) [Suspect]
     Indication: PROSTATE CANCER
     Dosage: 1 MG, DAILY, ORAL
     Route: 048
  3. LASIX [Suspect]
     Indication: OEDEMA
     Dosage: 20 MG, DAILY, ORAL
     Route: 048
  4. MESTINON [Suspect]
     Dosage: 120 MG, DAILY, ORAL
     Route: 048

REACTIONS (2)
  - INFLAMMATION LOCALISED [None]
  - RASH VESICULAR [None]
